FAERS Safety Report 22260166 (Version 1)
Quarter: 2023Q2

REPORT INFORMATION
  Report Type: Spontaneous
  Country: US (occurrence: US)
  Receive Date: 20230427
  Receipt Date: 20230427
  Transmission Date: 20230722
  Serious: No
  Sender: FDA-Public Use
  Company Number: US-MYOVANT SCIENCES GMBH-2023MYSCI0300220

PATIENT
  Age: 74 Year
  Sex: Male

DRUGS (11)
  1. ORGOVYX [Suspect]
     Active Substance: RELUGOLIX
     Indication: Prostate cancer
     Dosage: 360 MILLIGRAM, ONE TIME DOSE
     Route: 048
     Dates: start: 20230110, end: 20230110
  2. ORGOVYX [Suspect]
     Active Substance: RELUGOLIX
     Dosage: 120 MILLIGRAM, QD
     Route: 048
     Dates: start: 20230111
  3. AMLODIPINE [Concomitant]
     Active Substance: AMLODIPINE BESYLATE
     Indication: Cardiac disorder
     Dosage: 10 MILLIGRAM, QD
     Route: 065
     Dates: start: 1985
  4. IRBESARTAN [Concomitant]
     Active Substance: IRBESARTAN
     Indication: Cardiac disorder
     Dosage: 300 MILLIGRAM, QD
     Route: 065
     Dates: start: 2019
  5. FUROSEMIDE [Concomitant]
     Active Substance: FUROSEMIDE
     Indication: Fluid retention
     Dosage: 20 MILLIGRAM, BID
     Route: 065
     Dates: start: 2018
  6. FUROSEMIDE [Concomitant]
     Active Substance: FUROSEMIDE
     Indication: Cardiac disorder
  7. ALLOPURINOL [Concomitant]
     Active Substance: ALLOPURINOL
     Indication: Gout
     Dosage: 300 MILLIGRAM, QD
     Route: 065
  8. METOPROLOL [Concomitant]
     Active Substance: METOPROLOL
     Indication: Cardiac disorder
     Dosage: 100 MILLIGRAM, QD
     Route: 065
     Dates: start: 2020
  9. CLONIDINE HYDROCHLORIDE [Concomitant]
     Active Substance: CLONIDINE HYDROCHLORIDE
     Indication: Cardiac disorder
     Dosage: 0.1 MILLIGRAM, QD
     Route: 065
     Dates: start: 2022
  10. CLONIDINE HYDROCHLORIDE [Concomitant]
     Active Substance: CLONIDINE HYDROCHLORIDE
     Indication: Hypertension
  11. METAMUCIL                          /00029101/ [Concomitant]
     Indication: Constipation
     Dosage: UNK
     Route: 065
     Dates: start: 2022

REACTIONS (3)
  - Weight increased [Unknown]
  - Constipation [Unknown]
  - Therapy interrupted [Unknown]

NARRATIVE: CASE EVENT DATE: 20230313
